FAERS Safety Report 25394858 (Version 3)
Quarter: 2025Q4

REPORT INFORMATION
  Report Type: Report from Study
  Country: US (occurrence: US)
  Receive Date: 20250604
  Receipt Date: 20251118
  Transmission Date: 20260118
  Serious: Yes (Other)
  Sender: ABBVIE
  Company Number: US-ABBVIE-6303349

PATIENT
  Age: 67 Year
  Sex: Male

DRUGS (1)
  1. SKYRIZI [Suspect]
     Active Substance: RISANKIZUMAB-RZAA
     Indication: Psoriasis
     Route: 058
     Dates: start: 20240201

REACTIONS (15)
  - Cardiac pacemaker insertion [Recovered/Resolved]
  - Cardiac operation [Recovered/Resolved]
  - Liver disorder [Not Recovered/Not Resolved]
  - Aphonia [Not Recovered/Not Resolved]
  - Weight decreased [Not Recovered/Not Resolved]
  - Scleral discolouration [Unknown]
  - Eating disorder [Not Recovered/Not Resolved]
  - Illness [Unknown]
  - Feeding disorder [Not Recovered/Not Resolved]
  - Decreased appetite [Not Recovered/Not Resolved]
  - Psoriasis [Recovered/Resolved]
  - Loss of libido [Not Recovered/Not Resolved]
  - Pain [Recovering/Resolving]
  - Mobility decreased [Recovered/Resolved]
  - Fatigue [Not Recovered/Not Resolved]

NARRATIVE: CASE EVENT DATE: 20240101
